FAERS Safety Report 7458672-3 (Version None)
Quarter: 2011Q2

REPORT INFORMATION
  Report Type: 
  Country: None (occurrence: None)
  Receive Date: 20110504
  Receipt Date: 20100630
  Transmission Date: 20111010
  Serious: No
  Sender: FDA-Public Use
  Company Number: US-SANOFI-AVENTIS-2010SA038455

PATIENT
  Age: 65 Year
  Sex: Male

DRUGS (7)
  1. LANTUS [Suspect]
     Dates: start: 20100102
  2. LANTUS [Suspect]
     Dates: start: 20100102
  3. METFORMIN HCL [Suspect]
     Route: 065
     Dates: end: 20100501
  4. WELCHOL [Concomitant]
  5. GLYBURIDE [Suspect]
     Route: 065
     Dates: end: 20100101
  6. APIDRA [Suspect]
     Dosage: SLIDING SCALE
     Route: 058
     Dates: start: 20100102
  7. LANTUS [Suspect]
     Dosage: DOSE:35 UNIT(S)
     Route: 058
     Dates: start: 20100102

REACTIONS (2)
  - DIARRHOEA [None]
  - BLOOD IRON DECREASED [None]
